FAERS Safety Report 7568825-1 (Version None)
Quarter: 2011Q2

REPORT INFORMATION
  Report Type: 
  Country: None (occurrence: None)
  Receive Date: 20110623
  Receipt Date: 20110621
  Transmission Date: 20111010
  Serious: Yes (Other)
  Sender: FDA-Public Use
  Company Number: JP-PFIZER INC-2011130666

PATIENT
  Age: 91 Year
  Sex: Male

DRUGS (2)
  1. LIVALO [Concomitant]
     Dosage: UNK
     Route: 048
     Dates: end: 20110609
  2. ZOLOFT [Suspect]
     Dosage: 25 MG DAILY
     Route: 048
     Dates: start: 20110608, end: 20110609

REACTIONS (1)
  - RHABDOMYOLYSIS [None]
